FAERS Safety Report 19712585 (Version 2)
Quarter: 2021Q3

REPORT INFORMATION
  Report Type: Report from Study
  Country: US (occurrence: US)
  Receive Date: 20210816
  Receipt Date: 20210824
  Transmission Date: 20211014
  Serious: No
  Sender: FDA-Public Use
  Company Number: US-SUNOVION-2020SUN004064

PATIENT
  Sex: Female

DRUGS (1)
  1. LATUDA [Suspect]
     Active Substance: LURASIDONE HYDROCHLORIDE

REACTIONS (2)
  - Somnolence [Unknown]
  - Social avoidant behaviour [Unknown]
